FAERS Safety Report 8607418-1 (Version None)
Quarter: 2012Q3

REPORT INFORMATION
  Report Type: 
  Country: None (occurrence: None)
  Receive Date: 20120723
  Receipt Date: 20120713
  Transmission Date: 20120928
  Serious: Yes (Other)
  Sender: FDA-Public Use
  Company Number: 2012032860

PATIENT

DRUGS (4)
  1. PRIVIGEN [Suspect]
  2. PRIVIGEN [Suspect]
     Indication: AUTOIMMUNE APLASTIC ANAEMIA
     Dosage: 0.4G/KG FOR 5 DAYS
  3. PRIVIGEN [Suspect]
     Indication: CHRONIC MYELOID LEUKAEMIA
     Dosage: 0.4G/KG FOR 5 DAYS
  4. PRIVIGEN [Suspect]

REACTIONS (2)
  - OFF LABEL USE [None]
  - ANTI-ERYTHROCYTE ANTIBODY POSITIVE [None]
